FAERS Safety Report 21127309 (Version 1)
Quarter: 2022Q3

REPORT INFORMATION
  Report Type: Spontaneous
  Country: GB (occurrence: GB)
  Receive Date: 20220725
  Receipt Date: 20220725
  Transmission Date: 20221027
  Serious: Yes (Life-Threatening, Other)
  Sender: FDA-Public Use
  Company Number: None

PATIENT
  Age: 63 Year
  Sex: Male
  Weight: 89 kg

DRUGS (3)
  1. CLARITHROMYCIN [Suspect]
     Active Substance: CLARITHROMYCIN
     Indication: Product used for unknown indication
     Dosage: 2 DOSAGE FORMS DAILY; ONE TO BE TAKEN TWICE A DAY, FORM STRENGTH 500 MG
     Dates: start: 20220413, end: 20220413
  2. BECLOMETHASONE DIPROPIONATE [Concomitant]
     Active Substance: BECLOMETHASONE DIPROPIONATE
     Indication: Dyspnoea
     Dosage: 4 DOSAGE FORMS DAILY; TWO PUFFS TO BE INHALED TWICE A DAY, FORM STRENGTH 100MICROGRAMS/DOSE INHALER
     Route: 055
     Dates: start: 20220530
  3. AMOXICILLIN\CLAVULANATE POTASSIUM [Concomitant]
     Active Substance: AMOXICILLIN\CLAVULANATE POTASSIUM
     Indication: Product used for unknown indication
     Dosage: 3 DOSAGE FORMS DAILY; ONE TO BE TAKEN THREE TIMES A DAY, FORM STRENGTH 500MG/125MG
     Dates: start: 20220627

REACTIONS (1)
  - Dyspnoea [Recovered/Resolved]
